FAERS Safety Report 24734740 (Version 1)
Quarter: 2024Q4

REPORT INFORMATION
  Report Type: Spontaneous
  Country: US (occurrence: US)
  Receive Date: 20241214
  Receipt Date: 20241214
  Transmission Date: 20250114
  Serious: Yes (Hospitalization)
  Sender: IPSEN BIOPHARMACEUTICALS, INC.
  Company Number: US-IPSEN Group, Research and Development-2024-25434

PATIENT
  Sex: Male
  Weight: 34.6 kg

DRUGS (1)
  1. BYLVAY [Suspect]
     Active Substance: ODEVIXIBAT
     Indication: Product used for unknown indication
     Dosage: 2400 MCG DAILY
     Route: 048

REACTIONS (1)
  - Haemorrhage [Unknown]
